FAERS Safety Report 4956820-8 (Version None)
Quarter: 2006Q1

REPORT INFORMATION
  Report Type: 
  Country: None (occurrence: None)
  Receive Date: 20060323
  Receipt Date: 20060310
  Transmission Date: 20060701
  Serious: Yes (Death)
  Sender: FDA-Public Use
  Company Number: COT_0431_2006

PATIENT
  Age: 18 Year
  Sex: Female

DRUGS (2)
  1. VENTAVIS [Suspect]
     Indication: PULMONARY HYPERTENSION
  2. BOSENTAN [Concomitant]

REACTIONS (1)
  - SUDDEN DEATH [None]
